FAERS Safety Report 16211636 (Version 2)
Quarter: 2019Q2

REPORT INFORMATION
  Report Type: Spontaneous
  Country: US (occurrence: US)
  Receive Date: 20190418
  Receipt Date: 20190606
  Transmission Date: 20190711
  Serious: No
  Sender: FDA-Public Use
  Company Number: US-GLENMARK PHARMACEUTICALS-2019GMK039635

PATIENT

DRUGS (1)
  1. IMIQUIMOD CREAM USP, 5% [Suspect]
     Active Substance: IMIQUIMOD
     Indication: ACTINIC KERATOSIS
     Dosage: APPLY THE MEDICATION 5 TIMES A WEEK, DURATION OF USE: WEEKS AGO (UNSPECIFIED)
     Route: 061
     Dates: start: 201901, end: 20190130

REACTIONS (12)
  - Dermatitis [Recovering/Resolving]
  - Application site scab [Recovering/Resolving]
  - Product administered at inappropriate site [Unknown]
  - Paraesthesia [Recovering/Resolving]
  - Burning sensation [Recovering/Resolving]
  - Blister [Recovering/Resolving]
  - Erythema [Recovering/Resolving]
  - Product use issue [Unknown]
  - Feeling hot [Recovering/Resolving]
  - Tenderness [Recovering/Resolving]
  - Application site irritation [Recovering/Resolving]
  - Application site pruritus [Recovering/Resolving]

NARRATIVE: CASE EVENT DATE: 201901
